FAERS Safety Report 22262110 (Version 1)
Quarter: 2023Q2

REPORT INFORMATION
  Report Type: Spontaneous
  Country: US (occurrence: US)
  Receive Date: 20230428
  Receipt Date: 20230428
  Transmission Date: 20230722
  Serious: No
  Sender: FDA-Public Use
  Company Number: US-OYSTER POINT PHARMA, INC-US-OYS-23-000142

PATIENT
  Sex: Female

DRUGS (1)
  1. TYRVAYA [Suspect]
     Active Substance: VARENICLINE TARTRATE
     Indication: Dry eye
     Dosage: UNK UNK, BID
     Route: 045
     Dates: start: 202211, end: 20230204

REACTIONS (7)
  - Lip dry [Recovering/Resolving]
  - Oropharyngeal pain [Recovering/Resolving]
  - Dry throat [Recovering/Resolving]
  - COVID-19 [Recovered/Resolved]
  - Rhinorrhoea [Recovered/Resolved]
  - Cough [Recovering/Resolving]
  - Drug ineffective [Unknown]
